FAERS Safety Report 14415190 (Version 3)
Quarter: 2018Q3

REPORT INFORMATION
  Report Type: Spontaneous
  Country: FR (occurrence: FR)
  Receive Date: 20180121
  Receipt Date: 20180831
  Transmission Date: 20181010
  Serious: Yes (Other)
  Sender: FDA-Public Use
  Company Number: FR-CONCORDIA PHARMACEUTICALS INC.-GSH201801-000253

PATIENT
  Age: 72 Year
  Sex: Male

DRUGS (5)
  1. COAPROVEL [Concomitant]
     Active Substance: HYDROCHLOROTHIAZIDE\IRBESARTAN
  2. LANZOR [Concomitant]
     Active Substance: LANSOPRAZOLE
  3. KARDEGIC [Concomitant]
     Active Substance: ASPIRIN DL-LYSINE
  4. VENTOLINE [Concomitant]
     Active Substance: ALBUTEROL
  5. PLAQUENIL [Suspect]
     Active Substance: HYDROXYCHLOROQUINE SULFATE
     Indication: SYSTEMIC LUPUS ERYTHEMATOSUS
     Dosage: 1 TABLET PER DAY (1 DF, EVERY MORNING),
     Route: 048
     Dates: start: 2015

REACTIONS (4)
  - Blindness [Not Recovered/Not Resolved]
  - Visual impairment [Unknown]
  - Eye burns [Unknown]
  - Visual field defect [Not Recovered/Not Resolved]

NARRATIVE: CASE EVENT DATE: 20170928
